FAERS Safety Report 8572118-3 (Version None)
Quarter: 2012Q3

REPORT INFORMATION
  Report Type: 
  Country: None (occurrence: None)
  Receive Date: 20120806
  Receipt Date: 20120730
  Transmission Date: 20120928
  Serious: Yes (Other)
  Sender: FDA-Public Use
  Company Number: PHEH2012US007530

PATIENT
  Sex: Female
  Weight: 74.83 kg

DRUGS (8)
  1. GILENYA [Suspect]
     Indication: MULTIPLE SCLEROSIS
     Dosage: 0.5 MG, QD
     Route: 048
     Dates: start: 20120327, end: 20120331
  2. GILENYA [Suspect]
     Dosage: 0.5 MG, QOD
     Route: 048
     Dates: start: 20120409
  3. DETROL [Concomitant]
     Dosage: UNK UKN, QD
     Route: 048
  4. CALCIUM [Concomitant]
     Dosage: UNK UKN, QD
     Route: 048
  5. TYLENOL (CAPLET) [Concomitant]
     Dosage: UNK UKN, PRN
     Route: 048
  6. VITAMIN E [Concomitant]
     Dosage: UNK UKN, QD
     Route: 048
  7. PRILOSEC [Concomitant]
     Route: 048
  8. ASPIRIN [Concomitant]
     Dosage: 81 MG, UNK
     Route: 048

REACTIONS (7)
  - BLOOD PRESSURE DECREASED [None]
  - PAIN IN EXTREMITY [None]
  - HEADACHE [None]
  - PALPITATIONS [None]
  - INAPPROPRIATE SCHEDULE OF DRUG ADMINISTRATION [None]
  - CARDIAC DISORDER [None]
  - BRADYCARDIA [None]
